FAERS Safety Report 17085591 (Version 2)
Quarter: 2019Q4

REPORT INFORMATION
  Report Type: Report from Study
  Country: US (occurrence: US)
  Receive Date: 20191128
  Receipt Date: 20191206
  Transmission Date: 20200122
  Serious: Yes (Hospitalization, Other)
  Sender: FDA-Public Use
  Company Number: US-ASTELLAS-2019US046766

PATIENT
  Age: 48 Year
  Sex: Male

DRUGS (1)
  1. ASP2215 [Suspect]
     Active Substance: GILTERITINIB
     Indication: ACUTE MYELOID LEUKAEMIA
     Route: 048
     Dates: start: 20191101

REACTIONS (4)
  - Rectal haemorrhage [Not Recovered/Not Resolved]
  - Gastrointestinal disorder [Unknown]
  - Lip dry [Unknown]
  - Seizure [Unknown]

NARRATIVE: CASE EVENT DATE: 201911
